FAERS Safety Report 7542735-8 (Version None)
Quarter: 2011Q2

REPORT INFORMATION
  Report Type: 
  Country: None (occurrence: None)
  Receive Date: 20110613
  Receipt Date: 20110524
  Transmission Date: 20111010
  Serious: Yes (Hospitalization)
  Sender: FDA-Public Use
  Company Number: A0886522A

PATIENT
  Sex: Male
  Weight: 138.6 kg

DRUGS (5)
  1. GLYBURIDE [Concomitant]
  2. LESCOL [Concomitant]
  3. VIOXX [Concomitant]
  4. MICRONASE [Concomitant]
  5. AVANDIA [Suspect]
     Dosage: 8MG PER DAY
     Route: 048
     Dates: start: 20000101, end: 20100301

REACTIONS (2)
  - MYOCARDIAL INFARCTION [None]
  - CORONARY ARTERY DISEASE [None]
